FAERS Safety Report 5923619-5 (Version None)
Quarter: 2008Q4

REPORT INFORMATION
  Report Type: 
  Country: None (occurrence: None)
  Receive Date: 20081020
  Receipt Date: 20081009
  Transmission Date: 20090506
  Serious: Yes (Hospitalization)
  Sender: FDA-Public Use
  Company Number: JP-ASTRAZENECA-2008SE04434

PATIENT
  Age: 518 Month
  Sex: Male
  Weight: 108 kg

DRUGS (1)
  1. BLOPRESS PLUS [Suspect]
     Indication: HYPERTENSION
     Dosage: CANDESARTAN CILEXETIL 8 MG/HYDROCHLOROTHIAZIDE 12.5 MG
     Route: 048
     Dates: start: 20060601

REACTIONS (1)
  - PATHOLOGICAL FRACTURE [None]
